FAERS Safety Report 8543770-3 (Version None)
Quarter: 2012Q3

REPORT INFORMATION
  Report Type: 
  Country: None (occurrence: None)
  Receive Date: 20120727
  Receipt Date: 20120719
  Transmission Date: 20120928
  Serious: Yes (Other)
  Sender: FDA-Public Use
  Company Number: SE-JNJFOC-20120709403

PATIENT
  Sex: Female

DRUGS (11)
  1. ALVEDON [Concomitant]
     Dosage: TOTAL DAILY DOSE: 500-3000MG
     Route: 065
  2. WARFARIN SODIUM [Concomitant]
     Indication: ANTIPHOSPHOLIPID SYNDROME
     Route: 065
  3. REMICADE [Suspect]
     Route: 042
     Dates: start: 20120330
  4. CALCICHEW D3 [Concomitant]
     Dosage: TOTAL DAILY DOSE: 1000MG
     Route: 065
  5. REMICADE [Suspect]
     Indication: ANKYLOSING SPONDYLITIS
     Route: 042
     Dates: start: 20120302
  6. VARENICLINE TARTRATE [Concomitant]
     Route: 065
     Dates: start: 20120607
  7. REMICADE [Suspect]
     Route: 042
     Dates: start: 20120217
  8. PREDNISONE [Concomitant]
     Route: 065
  9. TRAMADOLE [Concomitant]
     Route: 065
  10. CHOLECALCIFEROL [Concomitant]
     Dosage: TOTAL DAILY DOSE: 1000MG
     Route: 065
  11. DEPO-PROVERA [Concomitant]
     Route: 065

REACTIONS (4)
  - DNA ANTIBODY POSITIVE [None]
  - SMOOTH MUSCLE ANTIBODY [None]
  - BACK PAIN [None]
  - TRANSAMINASES INCREASED [None]
